FAERS Safety Report 8333706-2 (Version None)
Quarter: 2012Q2

REPORT INFORMATION
  Report Type: 
  Country: None (occurrence: None)
  Receive Date: 20120503
  Receipt Date: 20120425
  Transmission Date: 20120825
  Serious: Yes (Hospitalization, Other)
  Sender: FDA-Public Use
  Company Number: MX-B.I. PHARMACEUTICALS,INC./RIDGEFIELD-2012-MX-00039MX

PATIENT
  Sex: Female
  Weight: 77.6 kg

DRUGS (10)
  1. ENOXAPARIN SODIUM [Suspect]
     Route: 058
     Dates: start: 20120305, end: 20120307
  2. CORDARONE [Concomitant]
     Indication: ATRIAL FIBRILLATION
     Dosage: 400 MG
     Route: 048
  3. GLUCOFAGE [Concomitant]
     Indication: TYPE 2 DIABETES MELLITUS
     Dosage: 850 MG
     Route: 048
     Dates: start: 20070911
  4. DILACORAN [Concomitant]
     Indication: HYPERTENSION
     Route: 048
  5. ACENOCOUMAROL [Suspect]
     Dosage: 2 MG
     Route: 048
     Dates: start: 20120130, end: 20120329
  6. DABIGATRAN ETEXILATE [Suspect]
     Indication: CEREBROVASCULAR ACCIDENT PROPHYLAXIS
     Dosage: 220 MG
     Route: 048
     Dates: start: 20110929, end: 20111201
  7. ACENOCOUMAROL [Suspect]
     Dosage: 2MG MWF, 1MG TTSS
     Route: 048
     Dates: start: 20120330
  8. METOPROLOL TARTRATE [Concomitant]
     Indication: HYPERTENSION
     Dosage: 190 MG
     Route: 048
     Dates: start: 20090101
  9. DILACORAN [Concomitant]
     Indication: ATRIAL FIBRILLATION
  10. DABIGATRAN ETEXILATE [Suspect]
     Dosage: 110 MG
     Route: 048
     Dates: start: 20111201, end: 20120127

REACTIONS (4)
  - ISCHAEMIC CEREBRAL INFARCTION [None]
  - TUBULOINTERSTITIAL NEPHRITIS [None]
  - DRUG HYPERSENSITIVITY [None]
  - ARTERIAL THROMBOSIS LIMB [None]
